FAERS Safety Report 5968363-3 (Version None)
Quarter: 2008Q4

REPORT INFORMATION
  Report Type: 
  Country: None (occurrence: None)
  Receive Date: 20081119
  Receipt Date: 20080724
  Transmission Date: 20090506
  Serious: No
  Sender: FDA-Public Use
  Company Number: WAES 0806USA02343

PATIENT
  Age: 63 Year
  Sex: Male
  Weight: 73.9363 kg

DRUGS (9)
  1. JANUVIA [Suspect]
     Indication: TYPE 2 DIABETES MELLITUS
     Dosage: 100 MG/DAILY/PO
     Route: 048
  2. ATENOLOL [Concomitant]
  3. DOXAZOSIN MESYLATE [Concomitant]
  4. FELODIPINE [Concomitant]
  5. GLIPIZIDE [Concomitant]
  6. HYDROCHLOROTHIAZIDE [Concomitant]
  7. LISINOPRIL [Concomitant]
  8. METFORMIN HCL [Concomitant]
  9. SIMVASTATIN [Concomitant]

REACTIONS (1)
  - DRUG ERUPTION [None]
